FAERS Safety Report 9587449 (Version 3)
Quarter: 2013Q4

REPORT INFORMATION
  Report Type: Report from Study
  Country: BR (occurrence: BR)
  Receive Date: 20131003
  Receipt Date: 20131101
  Transmission Date: 20140711
  Serious: Yes (Other)
  Sender: FDA-Public Use
  Company Number: PHHY2013BR110341

PATIENT
  Sex: Female
  Weight: 65 kg

DRUGS (4)
  1. DIOVAN [Suspect]
     Indication: HYPERTENSION
     Dosage: 1 TABLET (320 MG), DAILY
     Route: 048
  2. ATENSINA [Suspect]
     Indication: HYPERTENSION
     Dosage: 3 TABLETS (50 MG), DAILY
     Route: 048
  3. LOSARTAN POTASSIUM [Suspect]
     Indication: HYPERTENSION
     Dosage: 2 TABLETS (50 MG), DAILY
     Route: 048
  4. NATRILIX [Suspect]
     Indication: HYPERTENSION
     Dosage: 1 TABLET (10 MG), DAILY
     Route: 048

REACTIONS (3)
  - Maculopathy [Not Recovered/Not Resolved]
  - Blood pressure increased [Recovered/Resolved]
  - Headache [Recovered/Resolved]
